FAERS Safety Report 23779945 (Version 2)
Quarter: 2024Q2

REPORT INFORMATION
  Report Type: Report from Study
  Country: US (occurrence: US)
  Receive Date: 20240424
  Receipt Date: 20240530
  Transmission Date: 20240716
  Serious: Yes (Hospitalization, Other)
  Sender: FDA-Public Use
  Company Number: US-JAZZ PHARMACEUTICALS-2024-US-006414

PATIENT
  Age: 14 Year
  Sex: Male

DRUGS (3)
  1. EPIDIOLEX [Suspect]
     Active Substance: CANNABIDIOL
     Indication: Seizure
     Dosage: 2.5 MILLILITER, BID
     Route: 048
     Dates: start: 20230501
  2. CLOBAZAM [Concomitant]
     Active Substance: CLOBAZAM
  3. BRIVIACT [Concomitant]
     Active Substance: BRIVARACETAM

REACTIONS (4)
  - Hospitalisation [Unknown]
  - Seizure [Not Recovered/Not Resolved]
  - Dental caries [Not Recovered/Not Resolved]
  - Insomnia [Not Recovered/Not Resolved]

NARRATIVE: CASE EVENT DATE: 20230501
